FAERS Safety Report 9509704 (Version 1)
Quarter: 2013Q3

REPORT INFORMATION
  Report Type: Spontaneous
  Country: US (occurrence: US)
  Receive Date: 20130909
  Receipt Date: 20130909
  Transmission Date: 20140515
  Serious: No
  Sender: FDA-Public Use
  Company Number: US-BRISTOL-MYERS SQUIBB COMPANY-17169525

PATIENT
  Sex: Male

DRUGS (5)
  1. ABILIFY [Suspect]
  2. ESCITALOPRAM OXALATE [Suspect]
  3. VYVANSE [Suspect]
  4. LAMICTAL [Suspect]
  5. FLAXSEED OIL [Suspect]

REACTIONS (4)
  - Drug ineffective [Unknown]
  - Disturbance in attention [Not Recovered/Not Resolved]
  - Asthenia [Not Recovered/Not Resolved]
  - Tremor [Not Recovered/Not Resolved]
